FAERS Safety Report 8906081 (Version 1)
Quarter: 2012Q4

REPORT INFORMATION
  Report Type: 
  Country: US (occurrence: US)
  Receive Date: 20121113
  Receipt Date: 20121113
  Transmission Date: 20130627
  Serious: No
  Sender: FDA-Public Use
  Company Number: US-AMGEN-USASP2012009728

PATIENT
  Sex: Male

DRUGS (5)
  1. ENBREL [Suspect]
     Indication: PRODUCT USED FOR UNKNOWN INDICATION
     Dosage: 50 mg, qwk
     Route: 058
  2. NIACIN [Concomitant]
     Dosage: 400 mg, UNK
  3. FISH OIL [Concomitant]
  4. MULTIVITAMIN AND MINERAL [Concomitant]
  5. GLUCOSAMINE [Concomitant]
     Dosage: 500 mg, UNK

REACTIONS (5)
  - Iritis [Unknown]
  - Vertigo [Unknown]
  - Ear disorder [Unknown]
  - Influenza like illness [Unknown]
  - Middle ear effusion [Unknown]
